FAERS Safety Report 24178759 (Version 1)
Quarter: 2024Q3

REPORT INFORMATION
  Report Type: Spontaneous
  Country: US (occurrence: None)
  Receive Date: 20240805
  Receipt Date: 20240805
  Transmission Date: 20241016
  Serious: No
  Sender: Public
  Company Number: None

PATIENT

DRUGS (2)
  1. OXYTOCIN [Suspect]
     Active Substance: OXYTOCIN
  2. TRANEXAMIC ACID [Suspect]
     Active Substance: TRANEXAMIC ACID

REACTIONS (4)
  - Product barcode issue [None]
  - Product label confusion [None]
  - Product barcode issue [None]
  - Product label on wrong product [None]
